FAERS Safety Report 9218763 (Version 1)
Quarter: 2013Q2

REPORT INFORMATION
  Report Type: Spontaneous
  Country: US (occurrence: US)
  Receive Date: 20130409
  Receipt Date: 20130409
  Transmission Date: 20140414
  Serious: Yes (Death, Hospitalization)
  Sender: FDA-Public Use
  Company Number: US-B.I. PHARMACEUTICALS,INC./RIDGEFIELD-2013-BI-09179BP

PATIENT
  Age: 81 Year
  Sex: Male
  Weight: 59 kg

DRUGS (3)
  1. COMBIVENT [Suspect]
     Indication: CHRONIC OBSTRUCTIVE PULMONARY DISEASE
     Route: 055
     Dates: start: 201107, end: 201301
  2. ASMANEX [Concomitant]
  3. ALBUTEROL NEBS [Concomitant]
     Indication: CHRONIC OBSTRUCTIVE PULMONARY DISEASE
     Route: 055
     Dates: start: 201301

REACTIONS (3)
  - Aspiration [Fatal]
  - Unresponsive to stimuli [Recovered/Resolved]
  - Oedema peripheral [Recovered/Resolved]
